FAERS Safety Report 5547764-1 (Version None)
Quarter: 2007Q4

REPORT INFORMATION
  Report Type: 
  Country: None (occurrence: None)
  Receive Date: 20071211
  Receipt Date: 20070302
  Transmission Date: 20080405
  Serious: No
  Sender: FDA-Public Use
  Company Number: US-AMGEN-KDL213549

PATIENT
  Sex: Female

DRUGS (2)
  1. ENBREL [Suspect]
     Indication: RHEUMATOID ARTHRITIS
     Route: 058
     Dates: start: 20070205
  2. METHOTREXATE [Concomitant]
     Route: 048
     Dates: start: 20060801

REACTIONS (8)
  - DIZZINESS [None]
  - EPISTAXIS [None]
  - HEADACHE [None]
  - HEART RATE INCREASED [None]
  - IMPAIRED HEALING [None]
  - LOCALISED INFECTION [None]
  - NAUSEA [None]
  - PYREXIA [None]
